FAERS Safety Report 10993132 (Version 1)
Quarter: 2015Q2

REPORT INFORMATION
  Report Type: Not Available
  Country: DE (occurrence: DE)
  Receive Date: 20150407
  Receipt Date: 20150407
  Transmission Date: 20150821
  Serious: No
  Sender: FDA-Public Use
  Company Number: DE-LUPIN PHARMACEUTICALS INC.-2015-00388

PATIENT
  Age: 33 Year
  Sex: Female

DRUGS (2)
  1. LAMOTRIGIN-HORMOSAN 100 MG DISPERS [Suspect]
     Active Substance: LAMOTRIGINE
     Indication: DEPRESSION
     Route: 065
     Dates: end: 201501
  2. ARIPIPRAZOLE. [Concomitant]
     Active Substance: ARIPIPRAZOLE
     Indication: PRODUCT USED FOR UNKNOWN INDICATION
     Route: 065

REACTIONS (4)
  - Inappropriate schedule of drug administration [Unknown]
  - Product use issue [Unknown]
  - Tension [Not Recovered/Not Resolved]
  - Contusion [Not Recovered/Not Resolved]
